FAERS Safety Report 18852949 (Version 1)
Quarter: 2021Q1

REPORT INFORMATION
  Report Type: Spontaneous
  Country: FR (occurrence: FR)
  Receive Date: 20210205
  Receipt Date: 20210205
  Transmission Date: 20210420
  Serious: Yes (Hospitalization)
  Sender: FDA-Public Use
  Company Number: FR-PFIZER INC-2021094685

PATIENT
  Age: 75 Year
  Sex: Female
  Weight: 61 kg

DRUGS (16)
  1. SUTENT [Suspect]
     Active Substance: SUNITINIB MALATE
     Indication: CLEAR CELL RENAL CELL CARCINOMA
     Dosage: 37.5 MG, 1X/DAY
     Route: 048
     Dates: start: 20201222, end: 20210113
  2. DOLIPRANE [Concomitant]
     Active Substance: ACETAMINOPHEN
  3. SERESTA [Concomitant]
     Active Substance: OXAZEPAM
     Dosage: 2 DF, DAILY (1 TABLET AT 9 A.M AND 1  TABLET AT 10 P.M)
  4. EFFEXOR [Concomitant]
     Active Substance: VENLAFAXINE HYDROCHLORIDE
     Dosage: 1 DF, 1X/DAY, AT 8 A.M
  5. METOCLOPRAMIDE. [Concomitant]
     Active Substance: METOCLOPRAMIDE
  6. EFFEXOR [Concomitant]
     Active Substance: VENLAFAXINE HYDROCHLORIDE
     Dosage: 1 DF, 1X/DAY (1 CAPSULE AT 8 A.M)
  7. CORTANCYL [Concomitant]
     Active Substance: PREDNISONE
     Dosage: 1.5 DF, 1X/DAY, AT 8 A.M
  8. NEFOPAM [Concomitant]
     Active Substance: NEFOPAM
  9. OXYNORMORO [Concomitant]
     Active Substance: OXYCODONE HYDROCHLORIDE
  10. LANZOR [Concomitant]
     Active Substance: LANSOPRAZOLE
     Dosage: 1 DF, 1X/DAY, AT 10 A.M
  11. DORZOLAMID MYLAN [Concomitant]
     Dosage: 1 GOUTTE AT 8 A.M AND 1 GOUTTE AT 8 P.M
  12. OGAST [Concomitant]
     Active Substance: LANSOPRAZOLE
     Dosage: 1 DF, 1X/DAY, AT 10 A.M
  13. ZYLORIC [Concomitant]
     Active Substance: ALLOPURINOL
     Dosage: 1 DF, 1X/DAY, 1 TABLET AT 8 P.M
  14. FUROSEMIDE. [Concomitant]
     Active Substance: FUROSEMIDE
     Dosage: 1 DF, 1X/DAY
  15. TIMOCOMOD [Concomitant]
     Dosage: 1 GOUTTE AT 8 A.M AND 1 GOUTTE AT 8 P.M
  16. INNOHEP [Concomitant]
     Active Substance: TINZAPARIN SODIUM
     Dosage: 12000 IU AT 4 P.M

REACTIONS (1)
  - Acute respiratory failure [Recovered/Resolved]

NARRATIVE: CASE EVENT DATE: 20210108
